FAERS Safety Report 9496299 (Version 5)
Quarter: 2014Q1

REPORT INFORMATION
  Report Type: Spontaneous
  Country: US (occurrence: US)
  Receive Date: 20130904
  Receipt Date: 20140207
  Transmission Date: 20141002
  Serious: Yes (Other)
  Sender: FDA-Public Use
  Company Number: US-BAYER-2013-106636

PATIENT
  Age: 79 Year
  Sex: Male
  Weight: 66 kg

DRUGS (4)
  1. ALEVE CAPLET [Suspect]
     Indication: MYALGIA
     Dosage: 1 DF, QD
     Route: 048
     Dates: start: 2012, end: 20130817
  2. ALEVE CAPLET [Suspect]
     Indication: MYALGIA
     Dosage: 1 DF, QD
     Route: 048
     Dates: start: 2012, end: 20130817
  3. VITAMIN D3 [Concomitant]
  4. MELATONIN [Concomitant]

REACTIONS (7)
  - Hypoacusis [None]
  - Hypoacusis [Not Recovered/Not Resolved]
  - Tinnitus [Not Recovered/Not Resolved]
  - Urticaria [Recovered/Resolved]
  - Drug effect incomplete [None]
  - Blister [Recovering/Resolving]
  - Incorrect drug administration duration [None]
